FAERS Safety Report 9031413 (Version 1)
Quarter: 2013Q1

REPORT INFORMATION
  Report Type: Spontaneous
  Country: US (occurrence: US)
  Receive Date: 20130124
  Receipt Date: 20130124
  Transmission Date: 20140127
  Serious: Yes (Hospitalization)
  Sender: FDA-Public Use
  Company Number: US-ASTRAZENECA-2013SE03491

PATIENT
  Age: 64 Year
  Sex: Male
  Weight: 79.4 kg

DRUGS (12)
  1. NEXIUM [Suspect]
     Indication: BARRETT^S OESOPHAGUS
     Route: 048
  2. METOPROLOL [Suspect]
     Route: 048
  3. PRILOSEC [Suspect]
     Indication: ULCER
     Dosage: DELAYED RELEASE
     Route: 048
  4. ASPIRIN [Concomitant]
  5. PLAVIX [Concomitant]
     Dosage: GENERIC
  6. ZETIA [Concomitant]
     Indication: BLOOD CHOLESTEROL
     Route: 048
  7. ADVAIR DISCUS 100/50 [Concomitant]
     Indication: CHRONIC OBSTRUCTIVE PULMONARY DISEASE
     Dosage: 1 PUFF ,TWO TIMES A DAY
     Route: 055
  8. ATROVENT [Concomitant]
     Indication: CHRONIC OBSTRUCTIVE PULMONARY DISEASE
     Dosage: 2 PUFFS QID ,PRN
     Route: 055
  9. XOPENEX [Concomitant]
     Indication: CHRONIC OBSTRUCTIVE PULMONARY DISEASE
     Dosage: 2 PUFFS ,Q8H,PRN
     Route: 055
  10. CLONAZEPAM [Concomitant]
     Indication: TREMOR
     Route: 048
  11. CLONAZEPAM [Concomitant]
     Indication: ANXIETY
     Route: 048
  12. HYDROCODONE [Concomitant]
     Indication: PAIN
     Dosage: 10/325 MG ,Q6H PRN
     Route: 048

REACTIONS (3)
  - Precancerous cells present [Unknown]
  - Left ventricular dysfunction [Unknown]
  - Barrett^s oesophagus [Unknown]
